FAERS Safety Report 8556001-5 (Version None)
Quarter: 2012Q3

REPORT INFORMATION
  Report Type: 
  Country: None (occurrence: None)
  Receive Date: 20120719
  Receipt Date: 20110829
  Transmission Date: 20120928
  Serious: Yes (Death)
  Sender: FDA-Public Use
  Company Number: GGEL20110800780

PATIENT
  Age: 57 Year
  Sex: Female

DRUGS (1)
  1. METFFORMIN HYDROCHLORIDE [Suspect]
     Indication: HYPERGLYCAEMIA
     Dosage: ORAL
     Route: 048

REACTIONS (10)
  - TOXICITY TO VARIOUS AGENTS [None]
  - MYOCARDIAL INFARCTION [None]
  - VENTRICULAR TACHYCARDIA [None]
  - PCO2 DECREASED [None]
  - CARDIAC ARREST [None]
  - BLOOD PH DECREASED [None]
  - HAEMODIALYSIS [None]
  - HYPOTENSION [None]
  - DYSPNOEA [None]
  - METABOLIC ACIDOSIS [None]
